FAERS Safety Report 18733785 (Version 2)
Quarter: 2021Q1

REPORT INFORMATION
  Report Type: Other
  Country: AU (occurrence: AU)
  Receive Date: 20210113
  Receipt Date: 20210218
  Transmission Date: 20210419
  Serious: Yes (Other)
  Sender: FDA-Public Use
  Company Number: AU-ASTELLAS-2021US001030

PATIENT
  Age: 29 Year
  Sex: Male

DRUGS (12)
  1. PREDNISOLONE. [Suspect]
     Active Substance: PREDNISOLONE
     Indication: PROPHYLAXIS AGAINST GRAFT VERSUS HOST DISEASE
     Route: 048
  2. PREDNISOLONE. [Suspect]
     Active Substance: PREDNISOLONE
     Route: 048
  3. TACROLIMUS. [Suspect]
     Active Substance: TACROLIMUS
     Dosage: 1 MG, TWICE DAILY (INCREASED)
     Route: 065
  4. TACROLIMUS. [Suspect]
     Active Substance: TACROLIMUS
     Indication: PROPHYLAXIS AGAINST GRAFT VERSUS HOST DISEASE
     Route: 065
  5. BETAMETHASONE DIPROPIONATE. [Suspect]
     Active Substance: BETAMETHASONE DIPROPIONATE
     Dosage: 0.05 %, THRICE DAILY (WITH WET WRAPS)
     Route: 065
  6. PREDNISOLONE. [Suspect]
     Active Substance: PREDNISOLONE
     Dosage: 12.5 MG, ONCE DAILY (TAPERED)
     Route: 048
  7. METHYLPREDNISOLONE [METHYLPREDNISOLONE ACEPONATE] [Suspect]
     Active Substance: METHYLPREDNISOLONE ACEPONATE
     Dosage: 0.1 UNK, ONCE DAILY
     Route: 042
  8. BETAMETHASONE DIPROPIONATE. [Suspect]
     Active Substance: BETAMETHASONE DIPROPIONATE
     Indication: PRODUCT USED FOR UNKNOWN INDICATION
     Dosage: 0.05 %, TWICE DAILY (WITH WET WRAPS)
     Route: 065
  9. PREDNISOLONE. [Suspect]
     Active Substance: PREDNISOLONE
     Route: 048
  10. METHYLPREDNISOLONE [METHYLPREDNISOLONE ACEPONATE] [Suspect]
     Active Substance: METHYLPREDNISOLONE ACEPONATE
     Dosage: UNK UNK, UNKNOWN FREQ. (RECOMMENCED)
     Route: 042
  11. MYCOPHENOLATE MOFETIL. [Suspect]
     Active Substance: MYCOPHENOLATE MOFETIL
     Indication: PROPHYLAXIS AGAINST GRAFT VERSUS HOST DISEASE
     Route: 048
  12. METHYLPREDNISOLONE [METHYLPREDNISOLONE ACEPONATE] [Suspect]
     Active Substance: METHYLPREDNISOLONE ACEPONATE
     Indication: PROPHYLAXIS AGAINST GRAFT VERSUS HOST DISEASE
     Dosage: UNK UNK, TWICE DAILY
     Route: 042

REACTIONS (3)
  - Cytomegalovirus colitis [Unknown]
  - Product use in unapproved indication [Unknown]
  - Graft versus host disease in skin [Unknown]
